FAERS Safety Report 7197712-6 (Version None)
Quarter: 2010Q4

REPORT INFORMATION
  Report Type: 
  Country: None (occurrence: None)
  Receive Date: 20101210
  Receipt Date: 20101206
  Transmission Date: 20110411
  Serious: Yes (Death, Life-Threatening, Hospitalization)
  Sender: FDA-Public Use
  Company Number: 2010SP063551

PATIENT
  Age: 54 Year
  Sex: Female

DRUGS (9)
  1. TEMOZOLOMIDE [Suspect]
     Indication: NEOPLASM
     Dosage: PO
     Route: 048
     Dates: start: 20101018
  2. ABT-888 [Suspect]
     Indication: NEOPLASM
     Dosage: PO
     Route: 048
     Dates: start: 20101018
  3. HYDROCODONE BITARTRATE [Concomitant]
  4. FENTANYL [Concomitant]
  5. PANTOPRAZOLE [Concomitant]
  6. PROCHLORPERAZINE [Concomitant]
  7. EDISYLATE [Concomitant]
  8. ONDANSETRON [Concomitant]
  9. LOPERAMIDE HYDROCHLORIDE [Concomitant]

REACTIONS (14)
  - BLOOD BICARBONATE DECREASED [None]
  - BLOOD CHLORIDE DECREASED [None]
  - BLOOD GLUCOSE INCREASED [None]
  - BLOOD SODIUM DECREASED [None]
  - CARDIO-RESPIRATORY ARREST [None]
  - CONVULSION [None]
  - HAEMATOCRIT DECREASED [None]
  - HAEMOGLOBIN DECREASED [None]
  - HYPOTENSION [None]
  - LEFT VENTRICULAR DYSFUNCTION [None]
  - METABOLIC ACIDOSIS [None]
  - PERICARDIAL EFFUSION [None]
  - PLEURAL EFFUSION [None]
  - TROPONIN INCREASED [None]
